FAERS Safety Report 7951263-7 (Version None)
Quarter: 2011Q4

REPORT INFORMATION
  Report Type: 
  Country: None (occurrence: None)
  Receive Date: 20111201
  Receipt Date: 20111122
  Transmission Date: 20120403
  Serious: Yes (Other)
  Sender: FDA-Public Use
  Company Number: US-US-EMD SERONO, INC.-7098155

PATIENT
  Sex: Female

DRUGS (3)
  1. AMPYRA [Suspect]
     Dates: start: 20101201, end: 20101201
  2. REBIF [Suspect]
     Indication: PRODUCT USED FOR UNKNOWN INDICATION
     Route: 058
     Dates: start: 20050201, end: 20111001
  3. REBIF [Suspect]
     Route: 058
     Dates: start: 20111121

REACTIONS (2)
  - MONOPLEGIA [None]
  - INFLUENZA LIKE ILLNESS [None]
